FAERS Safety Report 4962204-9 (Version None)
Quarter: 2006Q2

REPORT INFORMATION
  Report Type: 
  Country: None (occurrence: None)
  Receive Date: 20060404
  Receipt Date: 20050930
  Transmission Date: 20061013
  Serious: Yes (Death, Hospitalization)
  Sender: FDA-Public Use
  Company Number: US-MERCK-0510USA00891

PATIENT
  Age: 73 Year
  Sex: Female
  Weight: 55 kg

DRUGS (5)
  1. VIOXX [Suspect]
     Indication: OSTEOPOROSIS
     Route: 048
     Dates: start: 20000801, end: 20010306
  2. VIOXX [Suspect]
     Route: 048
     Dates: start: 20010306, end: 20010820
  3. VIOXX [Suspect]
     Route: 048
     Dates: start: 20020820, end: 20021008
  4. VIOXX [Suspect]
     Route: 048
     Dates: start: 20021008, end: 20030501
  5. IBUPROFEN [Concomitant]
     Route: 065

REACTIONS (11)
  - ACUTE MYOCARDIAL INFARCTION [None]
  - ADVERSE DRUG REACTION [None]
  - COMPRESSION FRACTURE [None]
  - DIZZINESS [None]
  - DRY MOUTH [None]
  - HERPES ZOSTER [None]
  - NEURALGIA [None]
  - PNEUMONIA [None]
  - PSYCHOMOTOR HYPERACTIVITY [None]
  - PULMONARY MASS [None]
  - RIB FRACTURE [None]
